FAERS Safety Report 6255991-3 (Version None)
Quarter: 2009Q3

REPORT INFORMATION
  Report Type: 
  Country: None (occurrence: None)
  Receive Date: 20090706
  Receipt Date: 20090624
  Transmission Date: 20100115
  Serious: Yes (Other)
  Sender: FDA-Public Use
  Company Number: JP-PFIZER INC-2009232568

PATIENT
  Age: 55 Year

DRUGS (2)
  1. SUNITINIB MALATE [Suspect]
     Indication: RENAL CELL CARCINOMA
     Dosage: 50 MG, 1X/DAY
     Route: 048
     Dates: start: 20090503
  2. SORAFENIB TOSILATE [Concomitant]
     Dosage: UNK
     Route: 048
     Dates: start: 20080501, end: 20090401

REACTIONS (2)
  - HYPERTENSION [None]
  - SKIN DISORDER [None]
